FAERS Safety Report 16681233 (Version 1)
Quarter: 2019Q3

REPORT INFORMATION
  Report Type: Report from Study
  Country: None (occurrence: US)
  Receive Date: 20190808
  Receipt Date: 20190808
  Transmission Date: 20191004
  Serious: Yes (Hospitalization)
  Sender: FDA-Public Use
  Company Number: US-ABBVIE-19K-163-2878088-00

PATIENT
  Sex: Male

DRUGS (1)
  1. HUMIRA [Suspect]
     Active Substance: ADALIMUMAB
     Indication: RHEUMATOID ARTHRITIS
     Route: 058

REACTIONS (5)
  - Dyspnoea [Recovering/Resolving]
  - Gait inability [Recovering/Resolving]
  - Immune system disorder [Unknown]
  - Multiple organ dysfunction syndrome [Recovering/Resolving]
  - Urinary retention [Recovering/Resolving]
